FAERS Safety Report 5103514-4 (Version None)
Quarter: 2006Q3

REPORT INFORMATION
  Report Type: 
  Country: None (occurrence: None)
  Receive Date: 20060913
  Receipt Date: 20060614
  Transmission Date: 20061208
  Serious: Yes (Hospitalization, Disabling)
  Sender: FDA-Public Use
  Company Number: US-ROCHE-451997

PATIENT
  Age: 21 Year
  Sex: Male
  Weight: 80.7 kg

DRUGS (1)
  1. ACCUTANE [Suspect]
     Route: 065
     Dates: start: 19970402, end: 19970625

REACTIONS (10)
  - ANAEMIA [None]
  - ANHEDONIA [None]
  - ANXIETY [None]
  - CHAPPED LIPS [None]
  - COLITIS ULCERATIVE [None]
  - GASTROINTESTINAL DISORDER [None]
  - INFLAMMATORY BOWEL DISEASE [None]
  - LIP DRY [None]
  - MULTI-ORGAN DISORDER [None]
  - NASAL DRYNESS [None]
